FAERS Safety Report 8968081 (Version 1)
Quarter: 2012Q4

REPORT INFORMATION
  Report Type: 
  Country: US (occurrence: US)
  Receive Date: 20121217
  Receipt Date: 20121217
  Transmission Date: 20130627
  Serious: Yes (Other)
  Sender: FDA-Public Use
  Company Number: US-TEVA-375969USA

PATIENT
  Sex: Female

DRUGS (1)
  1. PROAIR HFA [Suspect]
     Indication: ASTHMA

REACTIONS (2)
  - Asthma [Unknown]
  - Drug ineffective [Unknown]
